FAERS Safety Report 8173082-1 (Version None)
Quarter: 2012Q1

REPORT INFORMATION
  Report Type: 
  Country: None (occurrence: None)
  Receive Date: 20120104
  Receipt Date: 20111206
  Transmission Date: 20120608
  Serious: No
  Sender: FDA-Public Use
  Company Number: 2011HGS-002732

PATIENT
  Age: 25 Year
  Sex: Female
  Weight: 93.441 kg

DRUGS (5)
  1. PLAQUENIL (HYDROXYCHLOROQUINE SULFATE) (HYDROXYCHLOROQUINE SULFATE) [Concomitant]
  2. PREDNISONE [Concomitant]
  3. BENLYSTA [Suspect]
     Indication: SYSTEMIC LUPUS ERYTHEMATOSUS
     Dosage: 10 MG/KG, 1 IN 4 WK, INTRAVENOUS DRIP
     Route: 041
     Dates: start: 20110808, end: 20111102
  4. BENLYSTA [Concomitant]
  5. IMURAN [Concomitant]

REACTIONS (3)
  - RASH VESICULAR [None]
  - HERPES ZOSTER [None]
  - ERYTHEMA [None]
